FAERS Safety Report 11164205 (Version 1)
Quarter: 2015Q2

REPORT INFORMATION
  Report Type: Spontaneous
  Country: BR (occurrence: BR)
  Receive Date: 20150604
  Receipt Date: 20150604
  Transmission Date: 20150821
  Serious: Yes (Other)
  Sender: FDA-Public Use
  Company Number: BR-JNJFOC-20150600771

PATIENT
  Sex: Male

DRUGS (1)
  1. CONCERTA [Suspect]
     Active Substance: METHYLPHENIDATE HYDROCHLORIDE
     Indication: ATTENTION DEFICIT/HYPERACTIVITY DISORDER
     Route: 048
     Dates: end: 2014

REACTIONS (4)
  - Crying [Recovered/Resolved]
  - Tachycardia [Recovered/Resolved]
  - Visual impairment [Unknown]
  - Migraine [Unknown]

NARRATIVE: CASE EVENT DATE: 2012
